FAERS Safety Report 10094192 (Version 1)
Quarter: 2014Q2

REPORT INFORMATION
  Report Type: Spontaneous
  Country: US (occurrence: None)
  Receive Date: 20140421
  Receipt Date: 20140421
  Transmission Date: 20141212
  Serious: Yes (Hospitalization, Disabling, Other)
  Sender: FDA-Public Use
  Company Number: None

PATIENT
  Age: 61 Year
  Sex: Female

DRUGS (2)
  1. METHYLPREDNISOLONE [Suspect]
     Indication: INFLAMMATION
     Dosage: 6 1ST DAY, 5 2ND DAY, 4 3RD DAY, 6,5,4,3,2,1
     Dates: start: 20140409, end: 20140415
  2. METHYLPREDNISOLONE [Suspect]
     Indication: PAIN IN EXTREMITY
     Dosage: 6 1ST DAY, 5 2ND DAY, 4 3RD DAY, 6,5,4,3,2,1
     Dates: start: 20140409, end: 20140415

REACTIONS (3)
  - Vertigo [None]
  - Blindness transient [None]
  - Headache [None]
